FAERS Safety Report 6048674-6 (Version None)
Quarter: 2009Q1

REPORT INFORMATION
  Report Type: 
  Country: None (occurrence: None)
  Receive Date: 20090123
  Receipt Date: 20090115
  Transmission Date: 20090719
  Serious: Yes (Hospitalization)
  Sender: FDA-Public Use
  Company Number: CA-ASTRAZENECA-2009UW01543

PATIENT
  Age: 15 Year
  Sex: Male
  Weight: 46 kg

DRUGS (19)
  1. MERREM [Suspect]
     Route: 042
  2. CEFAZOLIN [Suspect]
     Route: 042
  3. CLOXACILLIN [Suspect]
     Route: 042
  4. ACETAMINOPHEN [Concomitant]
     Route: 048
  5. AMITRIPTYLINE HCL [Concomitant]
     Route: 048
  6. BACTRIM [Concomitant]
  7. CALCIUM CARBONATE [Concomitant]
     Route: 048
  8. CEPHALEXIN [Concomitant]
     Route: 048
  9. CHOLECALCIFEROL [Concomitant]
     Route: 048
  10. CODEINE SUL TAB [Concomitant]
     Route: 048
  11. GABAPENTIN [Concomitant]
     Route: 048
  12. HYDROMORPHONE HCL [Concomitant]
     Route: 042
  13. LORAZEPAM [Concomitant]
     Route: 048
  14. MIRTAZAPINE [Concomitant]
     Route: 048
  15. NEUPOGEN [Concomitant]
     Route: 058
  16. TIMENTIN [Concomitant]
     Route: 042
  17. TOBRAMYCIN [Concomitant]
     Route: 042
  18. VANCOMYCIN [Concomitant]
     Route: 042
  19. VORICONAZOLE [Concomitant]
     Route: 048

REACTIONS (6)
  - HYPERSENSITIVITY [None]
  - PRURITUS [None]
  - PYREXIA [None]
  - RASH [None]
  - RASH ERYTHEMATOUS [None]
  - URTICARIA [None]
